FAERS Safety Report 21157057 (Version 1)
Quarter: 2022Q3

REPORT INFORMATION
  Report Type: Spontaneous
  Country: IS (occurrence: IS)
  Receive Date: 20220801
  Receipt Date: 20220801
  Transmission Date: 20221026
  Serious: Yes (Other)
  Sender: FDA-Public Use
  Company Number: IS-ROCHE-3141562

PATIENT
  Age: 24 Year
  Sex: Male
  Weight: 100 kg

DRUGS (29)
  1. GEMCITABINE HYDROCHLORIDE [Suspect]
     Active Substance: GEMCITABINE HYDROCHLORIDE
     Indication: Burkitt^s lymphoma
     Dosage: UNK UNK, UNKNOWN (GEMCITABINE-BASED REGIMEN DAY 1, 8, 15)
     Route: 065
     Dates: start: 20210901, end: 20211001
  2. PREDNISONE [Suspect]
     Active Substance: PREDNISONE
     Indication: Burkitt^s lymphoma
     Dosage: UNK UNK, UNKNOWN (4TH SYSTEMIC TREATMENT)
     Route: 065
     Dates: start: 20211022, end: 20211022
  3. METHOTREXATE [Suspect]
     Active Substance: METHOTREXATE
     Indication: Burkitt^s lymphoma
     Dosage: UNK UNK, UNKNOWN (1ST SYSTEMIC TREATMENT R-CODOX-M/IVAC)
     Route: 065
     Dates: start: 20210601, end: 20210701
  4. OBINUTUZUMAB [Suspect]
     Active Substance: OBINUTUZUMAB
     Indication: Burkitt^s lymphoma
     Dosage: UNK UNK, UNKNOWN (2ND SYSTEMIC TREATMENT OBINUTUZUMAB-ICE)
     Route: 042
     Dates: start: 20210701, end: 20210801
  5. CYTARABINE [Suspect]
     Active Substance: CYTARABINE
     Indication: Burkitt^s lymphoma
     Dosage: UNK UNK, UNKNOWN (1ST SYSTEMIC TREATMENT R-CODOX-M/IVAC)
     Route: 065
     Dates: start: 20210601, end: 20210701
  6. CARBOPLATIN [Suspect]
     Active Substance: CARBOPLATIN
     Indication: Burkitt^s lymphoma
     Dosage: UNK UNK, UNKNOWN (2ND SYSTEMIC TREATMENT OBINUTUZUMAB-ICE)
     Route: 065
     Dates: start: 20210701, end: 20210801
  7. DOXORUBICIN [Suspect]
     Active Substance: DOXORUBICIN
     Indication: Burkitt^s lymphoma
     Dosage: UNK UNK, UNKNOWN (4TH SYSTEMIC TREATMENT)
     Route: 065
     Dates: start: 20211022, end: 20211022
  8. DOXORUBICIN [Suspect]
     Active Substance: DOXORUBICIN
     Dosage: UNK UNK, UNKNOWN (1ST SYSTEMIC TREATMENT R-CODOX-M/IVAC)
     Route: 065
     Dates: start: 20210601, end: 20210701
  9. RITUXIMAB [Suspect]
     Active Substance: RITUXIMAB
     Indication: Burkitt^s lymphoma
     Dosage: UNK UNK, UNKNOWN (4TH SYSTEMIC TREATMENT)
     Route: 065
     Dates: start: 20211022, end: 20211022
  10. RITUXIMAB [Suspect]
     Active Substance: RITUXIMAB
     Dosage: UNK UNK, UNKNOWN (1ST SYSTEMIC TREATMENT R-CODOX-M/IVAC)
     Route: 065
     Dates: start: 20210601, end: 20210701
  11. IFOSFAMIDE [Suspect]
     Active Substance: IFOSFAMIDE
     Indication: Burkitt^s lymphoma
     Dosage: UNK UNK, UNKNOWN (1ST SYSTEMIC TREATMENT R-CODOX-M/IVAC)
     Route: 065
     Dates: start: 20210601, end: 20210701
  12. IFOSFAMIDE [Suspect]
     Active Substance: IFOSFAMIDE
     Dosage: UNK UNK, UNKNOWN (2ND SYSTEMIC TREATMENT OBINUTUZUMAB-ICE)
     Route: 065
     Dates: start: 20210701, end: 20210801
  13. ETOPOSIDE [Suspect]
     Active Substance: ETOPOSIDE
     Indication: Burkitt^s lymphoma
     Dosage: UNK UNK, UNKNOWN (1ST SYSTEMIC TREATMENT R-CODOX-M/IVAC)
     Route: 065
     Dates: start: 20210601, end: 20210701
  14. ETOPOSIDE [Suspect]
     Active Substance: ETOPOSIDE
     Dosage: UNK UNK, UNKNOWN (2ND SYSTEMIC TREATMENT OBINUTUZUMAB-ICE)
     Route: 065
     Dates: start: 20210701, end: 20210801
  15. MELPHALAN [Suspect]
     Active Substance: MELPHALAN
     Indication: Burkitt^s lymphoma
     Dosage: UNK UNK, UNKNOWN (GEMCITABINE-BASED REGIMEN D1)
     Route: 065
     Dates: start: 20210901, end: 20211001
  16. CYCLOPHOSPHAMIDE [Suspect]
     Active Substance: CYCLOPHOSPHAMIDE
     Indication: Burkitt^s lymphoma
     Dosage: UNK UNK, UNKNOWN (4TH SYSTEMIC TREATMENT)
     Route: 065
     Dates: start: 20211022, end: 20211022
  17. CYCLOPHOSPHAMIDE [Suspect]
     Active Substance: CYCLOPHOSPHAMIDE
     Dosage: UNK UNK, UNKNOWN (1ST SYSTEMIC TREATMENT R-CODOX-M/IVAC)
     Route: 065
     Dates: start: 20210601, end: 20210701
  18. VINCRISTINE [Suspect]
     Active Substance: VINCRISTINE
     Indication: Burkitt^s lymphoma
     Dosage: UNK UNK, UNKNOWN (4TH SYSTEMIC TREATMENT)
     Route: 065
     Dates: start: 20211022, end: 20211022
  19. VINCRISTINE [Suspect]
     Active Substance: VINCRISTINE
     Dosage: UNK UNK, UNKNOWN (1ST SYSTEMIC TREATMENT R-CODOX-M/IVAC)
     Route: 065
     Dates: start: 20210601, end: 20210701
  20. CITALOPRAM [Concomitant]
     Active Substance: CITALOPRAM HYDROBROMIDE
     Indication: Product used for unknown indication
     Dosage: 20 MG, UNKNOWN
  21. MORPHINE SULFATE [Concomitant]
     Active Substance: MORPHINE SULFATE
     Indication: Product used for unknown indication
     Dosage: 20 MG, BID
  22. ALLOPURINOL [Concomitant]
     Active Substance: ALLOPURINOL
     Indication: Product used for unknown indication
     Dosage: 300 MG, UNKNOWN
  23. VANCOMYCIN [Concomitant]
     Active Substance: VANCOMYCIN
     Indication: Product used for unknown indication
     Dosage: 1.5 G, UNKNOWN
  24. METRONIDAZOLE [Concomitant]
     Active Substance: METRONIDAZOLE
     Indication: Product used for unknown indication
  25. FLUCONAZOLE [Concomitant]
     Active Substance: FLUCONAZOLE
     Indication: Product used for unknown indication
  26. OXAZEPAM [Concomitant]
     Active Substance: OXAZEPAM
     Indication: Product used for unknown indication
     Dosage: 10 MG, UNKNOWN
  27. ACYCLOVIR [Concomitant]
     Active Substance: ACYCLOVIR
     Indication: Product used for unknown indication
  28. ACETAMINOPHEN [Concomitant]
     Active Substance: ACETAMINOPHEN
     Indication: Product used for unknown indication
     Dosage: 1000 MG, QID
  29. MEROPENEM [Concomitant]
     Active Substance: MEROPENEM
     Indication: Product used for unknown indication
     Dosage: 1 G, UNKNOWN

REACTIONS (4)
  - Malignant neoplasm progression [Unknown]
  - Small intestinal perforation [Unknown]
  - Blood lactate dehydrogenase increased [Unknown]
  - Off label use [Unknown]
